FAERS Safety Report 7536740 (Version 3)
Quarter: 2013Q4

REPORT INFORMATION
  Report Type: Spontaneous
  Country: FR (occurrence: FR)
  Receive Date: 20100811
  Receipt Date: 20131227
  Transmission Date: 20140711
  Serious: Yes (Hospitalization)
  Sender: FDA-Public Use
  Company Number: FR-AMGEN-QUU428536

PATIENT
  Age: 63 Year
  Sex: Female

DRUGS (3)
  1. NPLATE [Suspect]
     Indication: IMMUNE THROMBOCYTOPENIC PURPURA
     Dosage: 83 MUG, QWK
     Route: 058
     Dates: start: 20100312, end: 20100318
  2. PREDNISOLONE SODIUM SULFOBENZOATE [Concomitant]
     Dosage: 20 MG, UNK
  3. ROSUVASTATIN CALCIUM [Concomitant]
     Dosage: 5 MG, UNK

REACTIONS (2)
  - Deep vein thrombosis [Recovering/Resolving]
  - Pulmonary embolism [Recovering/Resolving]
